FAERS Safety Report 8231979-8 (Version None)
Quarter: 2012Q1

REPORT INFORMATION
  Report Type: 
  Country: None (occurrence: None)
  Receive Date: 20120323
  Receipt Date: 20120316
  Transmission Date: 20120608
  Serious: Yes (Hospitalization)
  Sender: FDA-Public Use
  Company Number: US-BAYER-2011-074713

PATIENT
  Age: 37 Year
  Sex: Female
  Weight: 115.19 kg

DRUGS (16)
  1. GAS-X [Concomitant]
     Indication: ABDOMINAL DISTENSION
  2. MAALOX EXTRA STRENGTH [Concomitant]
     Indication: PAIN
     Dosage: 2 TABLESPOONS Q 8 H
  3. CARAFATE [Concomitant]
     Indication: ABDOMINAL DISTENSION
  4. DILAUDID [Concomitant]
     Indication: PAIN
     Dosage: UNK
     Dates: start: 20090901
  5. IBUPROFEN [Concomitant]
     Indication: ABDOMINAL DISTENSION
  6. GAS-X [Concomitant]
     Indication: PAIN
     Dosage: 125 MG, Q 8HS, PRN
  7. MAALOX EXTRA STRENGTH [Concomitant]
     Indication: ABDOMINAL DISTENSION
  8. PROMETHAZINE [Concomitant]
     Indication: NAUSEA
  9. DROSPIRENONE AND ETHINYL ESTRADIOL [Suspect]
     Indication: PREMENSTRUAL SYNDROME
  10. CARAFATE [Concomitant]
     Indication: PAIN
     Dosage: 10 ML, Q 6 H
  11. YASMIN [Suspect]
     Indication: PREMENSTRUAL SYNDROME
  12. DROSPIRENONE AND ETHINYL ESTRADIOL [Suspect]
     Indication: CONTRACEPTION
  13. PRILOSEC [Concomitant]
     Dosage: UNK
     Dates: start: 20090814
  14. YASMIN [Suspect]
     Indication: CONTRACEPTION
     Dosage: UNK
     Route: 048
     Dates: start: 20090505, end: 20090908
  15. IBUPROFEN [Concomitant]
     Indication: PAIN
     Dosage: 800 MG, Q 8HS, PRN
  16. ZOFRAN [Concomitant]
     Dosage: UNK
     Dates: start: 20090901

REACTIONS (16)
  - PORTAL VEIN THROMBOSIS [None]
  - DECUBITUS ULCER [None]
  - ANXIETY [None]
  - POOR QUALITY SLEEP [None]
  - PAIN [None]
  - ABDOMINAL PAIN [None]
  - SPLENIC VEIN THROMBOSIS [None]
  - ANHEDONIA [None]
  - NAUSEA [None]
  - DEPRESSED MOOD [None]
  - FATIGUE [None]
  - ASTHENIA [None]
  - INJURY [None]
  - ABDOMINAL DISTENSION [None]
  - MESENTERIC VEIN THROMBOSIS [None]
  - GRIEF REACTION [None]
